FAERS Safety Report 4360786-1 (Version None)
Quarter: 2004Q2

REPORT INFORMATION
  Report Type: 
  Country: None (occurrence: None)
  Receive Date: 20040517
  Receipt Date: 20040429
  Transmission Date: 20050107
  Serious: Yes (Hospitalization)
  Sender: FDA-Public Use
  Company Number: A03200401347

PATIENT
  Sex: Female

DRUGS (1)
  1. ELOXATIN [Suspect]
     Indication: CARCINOMA
     Dosage: INTRAVENOUS NOS
     Route: 042

REACTIONS (3)
  - FLUSHING [None]
  - INFLUENZA LIKE ILLNESS [None]
  - PYREXIA [None]
